FAERS Safety Report 22079690 (Version 2)
Quarter: 2023Q2

REPORT INFORMATION
  Report Type: Report from Study
  Country: US (occurrence: US)
  Receive Date: 20230309
  Receipt Date: 20230426
  Transmission Date: 20230722
  Serious: Yes (Hospitalization, Other)
  Sender: FDA-Public Use
  Company Number: US-SA-SAC20230207000141

PATIENT
  Age: 71 Year
  Sex: Female

DRUGS (18)
  1. BELUMOSUDIL MESYLATE [Suspect]
     Active Substance: BELUMOSUDIL MESYLATE
     Indication: Graft versus host disease
     Dosage: 200 MG, QD
     Route: 048
     Dates: start: 20220923
  2. PREDNISONE [Concomitant]
     Active Substance: PREDNISONE
     Dosage: PREDNISONE 10MG QD (TOOK 20MG FOR TWO WEEKS, LAST DOSE TODAY)
  3. PREDNISONE [Concomitant]
     Active Substance: PREDNISONE
     Dosage: 10 UNK
  4. SIROLIMUS [Concomitant]
     Active Substance: SIROLIMUS
     Dosage: SIROLIMUS 1MG (4 TABLETS ON MONDAY, WEDNESDAY AND FRIDAY AND 3 TABLETS ON TUESDAY, THURSDAY AND SATU
  5. ACYCLOVIR [Concomitant]
     Active Substance: ACYCLOVIR
     Dosage: BID
  6. AZITHROMYCIN [Concomitant]
     Active Substance: AZITHROMYCIN
     Dosage: M-W-F
  7. ESCITALOPRAM OXALATE [Concomitant]
     Active Substance: ESCITALOPRAM OXALATE
     Dosage: QD
  8. MONTELUKAST SODIUM [Concomitant]
     Active Substance: MONTELUKAST SODIUM
     Dosage: QHS
  9. PENICILLIN V POTASSIUM [Concomitant]
     Active Substance: PENICILLIN V POTASSIUM
     Dosage: BID
  10. SULFAMETHOXAZOLE\TRIMETHOPRIM [Concomitant]
     Active Substance: SULFAMETHOXAZOLE\TRIMETHOPRIM
     Dosage: QD
  11. VITAMINS NOS [Concomitant]
     Active Substance: VITAMINS
     Dosage: QD
  12. LEVOTHYROXINE SODIUM [Concomitant]
     Active Substance: LEVOTHYROXINE SODIUM
     Dosage: QD
  13. FOSAMAX [Concomitant]
     Active Substance: ALENDRONATE SODIUM
     Dosage: QW
  14. MINERALS\VITAMINS [Concomitant]
     Active Substance: MINERALS\VITAMINS
     Dosage: BID
  15. VITAMIN C [Concomitant]
     Active Substance: ASCORBIC ACID
     Dosage: QD
  16. CALCIUM CARBONATE [Concomitant]
     Active Substance: CALCIUM CARBONATE
     Dosage: BID
  17. VITAMIN D NOS [Concomitant]
     Active Substance: VITAMIN D NOS
     Dosage: QD
  18. ZETIA [Concomitant]
     Active Substance: EZETIMIBE
     Dosage: QHS

REACTIONS (9)
  - Graft versus host disease [Not Recovered/Not Resolved]
  - Condition aggravated [Not Recovered/Not Resolved]
  - Pneumonia [Not Recovered/Not Resolved]
  - Dry eye [Not Recovered/Not Resolved]
  - COVID-19 [Unknown]
  - Dizziness [Recovered/Resolved]
  - Fatigue [Recovering/Resolving]
  - Pruritus [Recovered/Resolved]
  - Muscle spasms [Not Recovered/Not Resolved]
